FAERS Safety Report 14290840 (Version 1)
Quarter: 2017Q4

REPORT INFORMATION
  Report Type: Spontaneous
  Country: JP (occurrence: JP)
  Receive Date: 20171215
  Receipt Date: 20171215
  Transmission Date: 20180321
  Serious: Yes (Other)
  Sender: FDA-Public Use
  Company Number: JP-JNJFOC-20171131438

PATIENT

DRUGS (1)
  1. TRAMCET [Suspect]
     Active Substance: ACETAMINOPHEN\TRAMADOL
     Indication: PAIN
     Route: 048
     Dates: start: 2017

REACTIONS (2)
  - Dizziness [Not Recovered/Not Resolved]
  - Cerebellar infarction [Not Recovered/Not Resolved]

NARRATIVE: CASE EVENT DATE: 2017
